FAERS Safety Report 11774485 (Version 3)
Quarter: 2016Q1

REPORT INFORMATION
  Report Type: Spontaneous
  Country: CA (occurrence: CA)
  Receive Date: 20151124
  Receipt Date: 20160115
  Transmission Date: 20160525
  Serious: No
  Sender: FDA-Public Use
  Company Number: CA-PFIZER INC-2015396016

PATIENT
  Age: 31 Year
  Sex: Female
  Weight: 104.31 kg

DRUGS (2)
  1. ZOLOFT [Suspect]
     Active Substance: SERTRALINE HYDROCHLORIDE
     Indication: ANXIETY
     Dosage: 100 MG, AT NIGHT
     Route: 048
     Dates: start: 20151103, end: 20151114
  2. ZOLOFT [Suspect]
     Active Substance: SERTRALINE HYDROCHLORIDE
     Indication: DEPRESSION

REACTIONS (4)
  - Nausea [Recovering/Resolving]
  - Oesophageal pain [Recovering/Resolving]
  - Throat irritation [Recovering/Resolving]
  - Condition aggravated [Recovering/Resolving]

NARRATIVE: CASE EVENT DATE: 201511
